FAERS Safety Report 4556796-1 (Version None)
Quarter: 2005Q1

REPORT INFORMATION
  Report Type: 
  Country: None (occurrence: None)
  Receive Date: 20050103
  Receipt Date: 20040808
  Transmission Date: 20050727
  Serious: Yes (Life-Threatening, Hospitalization)
  Sender: FDA-Public Use
  Company Number: 2004UW12271

PATIENT
  Age: 75 Year
  Sex: Male

DRUGS (8)
  1. CRESTOR [Suspect]
     Indication: HYPERCHOLESTEROLAEMIA
     Dosage: 40 MG QD PO
     Route: 048
     Dates: start: 20040513, end: 20040609
  2. LIPITOR [Suspect]
     Dosage: 80 MG DAILY PO
     Route: 048
     Dates: end: 20040601
  3. ACETYLSALICYLIC ACID SRT [Concomitant]
  4. IBUPROFEN [Concomitant]
  5. ZETIA [Concomitant]
  6. VICODIN ES [Concomitant]
  7. NORVASC [Concomitant]
  8. NSAID [Concomitant]

REACTIONS (3)
  - MULTIPLE MYELOMA [None]
  - RENAL FAILURE ACUTE [None]
  - RHABDOMYOLYSIS [None]
